FAERS Safety Report 6810543-9 (Version None)
Quarter: 2010Q2

REPORT INFORMATION
  Report Type: 
  Country: None (occurrence: None)
  Receive Date: 20100625
  Receipt Date: 20100610
  Transmission Date: 20101027
  Serious: Yes (Life-Threatening, Hospitalization)
  Sender: FDA-Public Use
  Company Number: 1000014610

PATIENT
  Age: 85 Year
  Sex: Female

DRUGS (6)
  1. CITALOPRAM HYDROBROMIDE [Suspect]
     Dosage: 20 MG (20 MG, 1 IN 1 D), ORAL
     Route: 048
     Dates: end: 20100401
  2. ISORYTHM (CAPSULES) [Suspect]
     Dosage: 125 MG (125 MG, 1 IN 1 D), ORAL
     Route: 048
     Dates: end: 20100401
  3. RISPERDAL [Suspect]
     Dosage: 1 MG (1 MG, 1 IN 1 D), ORAL
     Route: 048
     Dates: end: 20100401
  4. ATARAX [Suspect]
     Dosage: 75 MG (15 MG, 3 IN 1 D), ORAL
     Route: 048
     Dates: end: 20100401
  5. ALDACTONE [Suspect]
     Dosage: 50 MG (50 MG, 1 IN 1 D),ORAL
     Route: 048
     Dates: end: 20100401
  6. TEMESTA (TABLETS) [Suspect]
     Dosage: 1 MG (1 MG, 1 IN 1 D), ORAL
     Route: 048
     Dates: end: 20100401

REACTIONS (12)
  - CARDIAC FAILURE [None]
  - CARDIOMEGALY [None]
  - CHEST X-RAY ABNORMAL [None]
  - DISORIENTATION [None]
  - DYSPNOEA [None]
  - ELECTROCARDIOGRAM QT PROLONGED [None]
  - LEUKOCYTOSIS [None]
  - PALLOR [None]
  - SYNCOPE [None]
  - VENTRICULAR EXTRASYSTOLES [None]
  - VENTRICULAR HYPOKINESIA [None]
  - VENTRICULAR TACHYCARDIA [None]
